FAERS Safety Report 15479985 (Version 2)
Quarter: 2018Q4

REPORT INFORMATION
  Report Type: Report from Study
  Country: US (occurrence: US)
  Receive Date: 20181009
  Receipt Date: 20181015
  Transmission Date: 20190205
  Serious: Yes (Hospitalization)
  Sender: FDA-Public Use
  Company Number: US-SHIRE-US201838471

PATIENT
  Sex: Female

DRUGS (1)
  1. VELAGLUCERASE ALFA [Suspect]
     Active Substance: VELAGLUCERASE ALFA
     Indication: GAUCHER^S DISEASE
     Dosage: 55.65 IU/KG, 1X/2WKS
     Route: 065
     Dates: start: 20170728

REACTIONS (1)
  - Oesophageal perforation [Recovered/Resolved]

NARRATIVE: CASE EVENT DATE: 20180307
